FAERS Safety Report 6878081-5 (Version None)
Quarter: 2010Q2

REPORT INFORMATION
  Report Type: 
  Country: None (occurrence: None)
  Receive Date: 20100616
  Receipt Date: 20100310
  Transmission Date: 20101027
  Serious: No
  Sender: FDA-Public Use
  Company Number: DSA_41742_2009

PATIENT
  Sex: Female

DRUGS (4)
  1. XENAZINE [Suspect]
     Indication: DYSTONIA
     Dosage: (12 .5 MG TID), (25 MG TID ORAL)
     Route: 048
     Dates: start: 20050101, end: 20100119
  2. XENAZINE [Suspect]
     Indication: DYSTONIA
     Dosage: (12 .5 MG TID), (25 MG TID ORAL)
     Route: 048
     Dates: start: 20100120
  3. ATIVAN [Concomitant]
  4. BACLOFEN [Concomitant]

REACTIONS (4)
  - BACK PAIN [None]
  - DEPRESSION [None]
  - DYSPHAGIA [None]
  - PAIN [None]
